FAERS Safety Report 9853579 (Version 1)
Quarter: 2014Q1

REPORT INFORMATION
  Report Type: Spontaneous
  Country: US (occurrence: US)
  Receive Date: 20140129
  Receipt Date: 20140129
  Transmission Date: 20141002
  Serious: No
  Sender: FDA-Public Use
  Company Number: US-TARO-2013P1022025

PATIENT
  Age: 79 Year
  Sex: Female
  Weight: 50.35 kg

DRUGS (1)
  1. KETOCONAZOLE CREAM 2% [Suspect]
     Indication: ANDROGENETIC ALOPECIA
     Route: 061
     Dates: start: 201309

REACTIONS (3)
  - Application site discolouration [Not Recovered/Not Resolved]
  - Pruritus [Not Recovered/Not Resolved]
  - Drug ineffective for unapproved indication [Not Recovered/Not Resolved]
